FAERS Safety Report 13895006 (Version 2)
Quarter: 2017Q3

REPORT INFORMATION
  Report Type: Spontaneous
  Country: US (occurrence: US)
  Receive Date: 20170823
  Receipt Date: 20170913
  Transmission Date: 20171127
  Serious: Yes (Hospitalization)
  Sender: FDA-Public Use
  Company Number: US-BEH-2017082973

PATIENT
  Age: 52 Year
  Sex: Female

DRUGS (2)
  1. HIZENTRA [Suspect]
     Active Substance: HUMAN IMMUNOGLOBULIN G
     Dosage: 18 G, QW
     Route: 058
     Dates: start: 20160311
  2. HIZENTRA [Suspect]
     Active Substance: HUMAN IMMUNOGLOBULIN G
     Indication: IMMUNODEFICIENCY COMMON VARIABLE
     Dosage: 18 G, QW
     Route: 058
     Dates: start: 20151023

REACTIONS (1)
  - Kidney infection [Unknown]

NARRATIVE: CASE EVENT DATE: 20170803
